FAERS Safety Report 22257087 (Version 1)
Quarter: 2023Q2

REPORT INFORMATION
  Report Type: Spontaneous
  Country: CA (occurrence: CA)
  Receive Date: 20230427
  Receipt Date: 20230427
  Transmission Date: 20230721
  Serious: Yes (Hospitalization, Other)
  Sender: FDA-Public Use
  Company Number: CA-ROCHE-1303097

PATIENT
  Age: 52 Year
  Sex: Male

DRUGS (8)
  1. CLONAZEPAM [Suspect]
     Active Substance: CLONAZEPAM
     Indication: Major depression
  2. CITALOPRAM [Suspect]
     Active Substance: CITALOPRAM HYDROBROMIDE
     Indication: Major depression
  3. CITALOPRAM [Suspect]
     Active Substance: CITALOPRAM HYDROBROMIDE
     Indication: Major depression
  4. QUETIAPINE [Suspect]
     Active Substance: QUETIAPINE
     Indication: Insomnia
  5. RISPERIDONE [Suspect]
     Active Substance: RISPERIDONE
     Indication: Major depression
  6. ZOPICLONE [Suspect]
     Active Substance: ZOPICLONE
     Indication: Major depression
  7. LAMOTRIGINE [Suspect]
     Active Substance: LAMOTRIGINE
     Indication: Major depression
  8. VALPROIC ACID [Suspect]
     Active Substance: VALPROIC ACID
     Indication: Major depression

REACTIONS (14)
  - Abnormal behaviour [Recovered/Resolved]
  - Agitation [Recovered/Resolved]
  - Blood creatine phosphokinase increased [Recovered/Resolved]
  - Disorientation [Recovered/Resolved]
  - Product use in unapproved indication [Unknown]
  - Hallucination, auditory [Recovered/Resolved]
  - Hypertension [Recovered/Resolved]
  - Hypertonia [Recovered/Resolved]
  - Muscle rigidity [Recovered/Resolved]
  - Neuroleptic malignant syndrome [Recovered/Resolved]
  - Psychiatric symptom [Recovered/Resolved]
  - Speech disorder [Recovered/Resolved]
  - Tachycardia [Recovered/Resolved]
  - Tremor [Recovered/Resolved]
